FAERS Safety Report 5202596-9 (Version None)
Quarter: 2007Q1

REPORT INFORMATION
  Report Type: 
  Country: None (occurrence: None)
  Receive Date: 20070109
  Receipt Date: 20061228
  Transmission Date: 20070707
  Serious: Yes (Disabling, Other)
  Sender: FDA-Public Use
  Company Number: US-PFIZER INC-2006128454

PATIENT
  Sex: Female
  Weight: 79.4 kg

DRUGS (3)
  1. CHANTIX [Suspect]
     Indication: SMOKING CESSATION THERAPY
  2. PREVACID [Concomitant]
  3. WELCHOL [Concomitant]

REACTIONS (4)
  - DECREASED ACTIVITY [None]
  - DRUG EFFECT DECREASED [None]
  - FEELING JITTERY [None]
  - MEMORY IMPAIRMENT [None]
